FAERS Safety Report 8186311-5 (Version None)
Quarter: 2012Q1

REPORT INFORMATION
  Report Type: 
  Country: None (occurrence: None)
  Receive Date: 20120306
  Receipt Date: 20120227
  Transmission Date: 20120608
  Serious: Yes (Hospitalization, Other)
  Sender: FDA-Public Use
  Company Number: US-BAYER-2012-007478

PATIENT
  Sex: Female
  Weight: 78 kg

DRUGS (4)
  1. YASMIN [Suspect]
     Dosage: UNK
     Dates: start: 20060616, end: 20070404
  2. IBUPROFEN [Concomitant]
     Dosage: UNK
     Dates: start: 20070404
  3. LIPITOR [Concomitant]
     Dosage: UNK
     Route: 048
     Dates: start: 20070401
  4. ASPIRIN [Concomitant]

REACTIONS (6)
  - PAIN [None]
  - DEEP VEIN THROMBOSIS [None]
  - PAIN IN EXTREMITY [None]
  - THROMBOSIS [None]
  - EMOTIONAL DISTRESS [None]
  - GENERAL PHYSICAL HEALTH DETERIORATION [None]
